FAERS Safety Report 5222908-X (Version None)
Quarter: 2007Q1

REPORT INFORMATION
  Report Type: 
  Country: None (occurrence: None)
  Receive Date: 20061208
  Receipt Date: 20060306
  Transmission Date: 20070707
  Serious: Yes (Other)
  Sender: FDA-Public Use
  Company Number: 2006033530

PATIENT
  Sex: Male
  Weight: 117.9352 kg

DRUGS (4)
  1. VIAGRA [Suspect]
     Indication: ERECTILE DYSFUNCTION
     Dosage: 100 MG (100 MG)
  2. METOPROLOL TARTRATE [Concomitant]
  3. LISINOPRIL AND HYDROCHLOROTHIAZIDE [Concomitant]
  4. MULTI-VITAMINS [Concomitant]

REACTIONS (4)
  - DIABETES MELLITUS [None]
  - FEELING HOT [None]
  - MALAISE [None]
  - NAUSEA [None]
